FAERS Safety Report 9305213 (Version 3)
Quarter: 2013Q2

REPORT INFORMATION
  Report Type: Spontaneous
  Country: ES (occurrence: None)
  Receive Date: 20130327
  Receipt Date: 20130613
  Transmission Date: 20140414
  Serious: Yes (Disabling)
  Sender: FDA-Public Use
  Company Number: 201211039

PATIENT
  Age: 64 Year
  Sex: Male

DRUGS (6)
  1. XIAPEX [Suspect]
     Indication: DUPUYTREN^S CONTRACTURE
     Dosage: INTRALESIONAL
     Dates: start: 20120723, end: 20120723
  2. LANTUS (INSULIN GLARGINE) [Concomitant]
  3. ENALAPRIL [Concomitant]
  4. METFORMIN PIOGLITAZONE (METFORMIN) [Concomitant]
  5. TROMALYT (ACETYLSALICYLIC ACID) [Concomitant]
  6. FENOFIBRATE (FENOFIBRATE) [Concomitant]

REACTIONS (8)
  - Treatment noncompliance [None]
  - Complex regional pain syndrome [None]
  - Sleep disorder [None]
  - Carpal tunnel syndrome [None]
  - Depression [None]
  - Pain in extremity [None]
  - Nerve injury [None]
  - Complex regional pain syndrome [None]
